FAERS Safety Report 8779284 (Version 4)
Quarter: 2012Q4

REPORT INFORMATION
  Report Type: 
  Country: JP (occurrence: JP)
  Receive Date: 20120911
  Receipt Date: 20121018
  Transmission Date: 20130627
  Serious: Yes (Death)
  Sender: FDA-Public Use
  Company Number: JP-ELI_LILLY_AND_COMPANY-JP201209001050

PATIENT
  Age: 77 Year
  Sex: Female
  Weight: 37.5 kg

DRUGS (9)
  1. GEMZAR [Suspect]
     Indication: PANCREATIC CARCINOMA STAGE IV
     Dosage: 800 mg, weekly (1/W)
     Route: 042
     Dates: start: 20111111, end: 20111216
  2. GEMZAR [Suspect]
     Dosage: 1300 mg, other
     Route: 042
     Dates: start: 20120120, end: 20120709
  3. CRESTOR [Concomitant]
     Indication: HYPERLIPIDAEMIA
     Dosage: 2.5 mg, qd
     Route: 048
     Dates: end: 20120721
  4. ASCATE [Concomitant]
     Indication: HYPOKALAEMIA
     Dosage: 300 mg, tid
     Route: 048
     Dates: end: 20120721
  5. METFORMIN HYDROCHLORIDE [Concomitant]
     Indication: DIABETES MELLITUS
     Dosage: 250 mg, tid
     Route: 048
     Dates: end: 20120721
  6. MYSLEE [Concomitant]
     Indication: INSOMNIA
     Dosage: 20 mg, qd
     Dates: end: 20120721
  7. OXYCONTIN [Concomitant]
     Indication: CANCER PAIN
     Dosage: 35 mg, bid
     Route: 048
     Dates: end: 20120721
  8. OXYCODONE HYDROCHLORIDE [Concomitant]
     Indication: CANCER PAIN
     Dosage: 10 mg, single
     Route: 048
     Dates: end: 20120721
  9. FENTANYL [Concomitant]
     Dosage: UNK
     Route: 042
     Dates: start: 20120721

REACTIONS (3)
  - Acute respiratory failure [Fatal]
  - Interstitial lung disease [Fatal]
  - Gastric ulcer [Unknown]
